FAERS Safety Report 11423822 (Version 1)
Quarter: 2015Q3

REPORT INFORMATION
  Report Type: Spontaneous
  Country: US (occurrence: US)
  Receive Date: 20150827
  Receipt Date: 20150827
  Transmission Date: 20151125
  Serious: No
  Sender: FDA-Public Use
  Company Number: US-JNJFOC-20150503409

PATIENT
  Age: 23 Month
  Sex: Female
  Weight: 12.25 kg

DRUGS (2)
  1. UNSPECIFIED NEBULIZER [Concomitant]
     Active Substance: UNSPECIFIED INGREDIENT
     Indication: ASTHMA
     Route: 065
  2. CONCENTRATED MOTRIN INFANTS^ DROPS BERRY FLAVOR [Suspect]
     Active Substance: IBUPROFEN
     Indication: PYREXIA
     Route: 048
     Dates: start: 20150505, end: 20150505

REACTIONS (1)
  - Oral discomfort [Recovered/Resolved]

NARRATIVE: CASE EVENT DATE: 20150505
